FAERS Safety Report 18791262 (Version 1)
Quarter: 2021Q1

REPORT INFORMATION
  Report Type: Spontaneous
  Country: US (occurrence: US)
  Receive Date: 20210126
  Receipt Date: 20210126
  Transmission Date: 20210419
  Serious: Yes (Other)
  Sender: FDA-Public Use
  Company Number: US-ENDO PHARMACEUTICALS INC-2020-003751

PATIENT
  Sex: Female

DRUGS (1)
  1. PERCOCET [Suspect]
     Active Substance: ACETAMINOPHEN\OXYCODONE HYDROCHLORIDE
     Indication: BACK PAIN
     Dosage: 3?4 TIMES A WEEK
     Route: 045

REACTIONS (5)
  - Myalgia [Unknown]
  - Maternal exposure during pregnancy [Unknown]
  - Drug diversion [Unknown]
  - Diarrhoea [Unknown]
  - Drug abuse [Unknown]
